FAERS Safety Report 7554490-6 (Version None)
Quarter: 2011Q2

REPORT INFORMATION
  Report Type: 
  Country: None (occurrence: None)
  Receive Date: 20110617
  Receipt Date: 20110610
  Transmission Date: 20111010
  Serious: Yes (Death)
  Sender: FDA-Public Use
  Company Number: B0702121A

PATIENT
  Sex: Female

DRUGS (4)
  1. LANOXIN [Concomitant]
     Indication: PAIN
     Route: 048
     Dates: start: 20110126
  2. TYKERB [Suspect]
     Indication: BREAST CANCER
     Dosage: 1250MG PER DAY
     Route: 048
     Dates: start: 20110209, end: 20110217
  3. MUCOSTA [Concomitant]
     Route: 048
     Dates: start: 20110126
  4. XELODA [Suspect]
     Indication: BREAST CANCER
     Dosage: 2400MG PER DAY
     Route: 048
     Dates: start: 20110209, end: 20110217

REACTIONS (1)
  - CARDIAC ARREST [None]
